FAERS Safety Report 5871198-3 (Version None)
Quarter: 2008Q3

REPORT INFORMATION
  Report Type: 
  Country: None (occurrence: None)
  Receive Date: 20080829
  Receipt Date: 20080825
  Transmission Date: 20090109
  Serious: Yes (Hospitalization)
  Sender: FDA-Public Use
  Company Number: 004044

PATIENT
  Age: 93 Year
  Sex: Male

DRUGS (2)
  1. PLETAL [Suspect]
     Dosage: ORAL
     Route: 048
  2. AMIODARONE HCL [Concomitant]

REACTIONS (1)
  - ARRHYTHMIA [None]
